FAERS Safety Report 11096613 (Version 1)
Quarter: 2015Q2

REPORT INFORMATION
  Report Type: Spontaneous
  Country: US (occurrence: US)
  Receive Date: 20150507
  Receipt Date: 20150507
  Transmission Date: 20150821
  Serious: No
  Sender: FDA-Public Use
  Company Number: US-009507513-1504USA004393

PATIENT
  Age: 34 Year
  Sex: Male

DRUGS (10)
  1. LISINOPRIL. [Concomitant]
     Active Substance: LISINOPRIL
  2. WELLBUTRIN [Concomitant]
     Active Substance: BUPROPION HYDROCHLORIDE
  3. PROMETHAZINE [Concomitant]
     Active Substance: PROMETHAZINE\PROMETHAZINE HYDROCHLORIDE
  4. TRUVADA [Concomitant]
     Active Substance: EMTRICITABINE\TENOFOVIR DISOPROXIL FUMARATE
  5. PRAZOSIN [Concomitant]
     Active Substance: PRAZOSIN
  6. ISENTRESS [Suspect]
     Active Substance: RALTEGRAVIR POTASSIUM
     Indication: HIV INFECTION
     Dosage: FREQUENCY UNSPECIFIED
     Route: 048
     Dates: start: 2015, end: 20150407
  7. VICODIN [Concomitant]
     Active Substance: ACETAMINOPHEN\HYDROCODONE BITARTRATE
  8. NORVIR [Concomitant]
     Active Substance: RITONAVIR
  9. PREZISTA [Concomitant]
     Active Substance: DARUNAVIR ETHANOLATE
  10. DRONABINOL. [Concomitant]
     Active Substance: DRONABINOL

REACTIONS (3)
  - Rash [Recovering/Resolving]
  - Rash erythematous [Recovering/Resolving]
  - Rash pruritic [Recovering/Resolving]

NARRATIVE: CASE EVENT DATE: 2015
